FAERS Safety Report 10977767 (Version 1)
Quarter: 2015Q2

REPORT INFORMATION
  Report Type: Spontaneous
  Country: GR (occurrence: GR)
  Receive Date: 20150402
  Receipt Date: 20150402
  Transmission Date: 20150821
  Serious: Yes (Hospitalization)
  Sender: FDA-Public Use
  Company Number: GR-GLAXOSMITHKLINE INC.-GR2015GSK041379

PATIENT
  Age: 5 Year
  Sex: Female

DRUGS (2)
  1. SERETIDE [Suspect]
     Active Substance: FLUTICASONE FUROATE\SALMETEROL XINAFOATE
     Dosage: UNK
  2. HAVRIX [Suspect]
     Active Substance: HEPATITIS A VIRUS STRAIN HM175 ANTIGEN (FORMALDEHYDE INACTIVATED)
     Indication: PROPHYLAXIS
     Route: 065

REACTIONS (8)
  - Oedema peripheral [Unknown]
  - Viral upper respiratory tract infection [Unknown]
  - Nervousness [Recovered/Resolved]
  - Pyrexia [Unknown]
  - Cough [Unknown]
  - Henoch-Schonlein purpura [Unknown]
  - Pain in extremity [Unknown]
  - Rash [Unknown]
